FAERS Safety Report 6052523-X (Version None)
Quarter: 2009Q1

REPORT INFORMATION
  Report Type: 
  Country: None (occurrence: None)
  Receive Date: 20090121
  Receipt Date: 20090107
  Transmission Date: 20090719
  Serious: Yes (Other)
  Sender: FDA-Public Use
  Company Number: 2009-189473-NL

PATIENT
  Age: 25 Year
  Sex: Female
  Weight: 81.6 kg

DRUGS (2)
  1. IMPLANON [Suspect]
     Indication: MENORRHAGIA
     Dosage: SUBDERMAL
     Route: 059
     Dates: start: 20080412
  2. CELEXA [Concomitant]

REACTIONS (3)
  - ANAEMIA [None]
  - CONDITION AGGRAVATED [None]
  - MENORRHAGIA [None]
